FAERS Safety Report 5931041-0 (Version None)
Quarter: 2008Q4

REPORT INFORMATION
  Report Type: 
  Country: None (occurrence: None)
  Receive Date: 20081027
  Receipt Date: 20081017
  Transmission Date: 20090506
  Serious: Yes (Hospitalization)
  Sender: FDA-Public Use
  Company Number: FR-AVENTIS-200813720FR

PATIENT
  Age: 37 Year
  Sex: Male

DRUGS (2)
  1. BIRODOGYL [Suspect]
     Indication: DENTAL CARE
     Route: 048
     Dates: start: 20080828, end: 20080831
  2. DIANTALVIC [Suspect]
     Indication: DENTAL CARE
     Route: 048
     Dates: start: 20080828, end: 20080831

REACTIONS (6)
  - CHILLS [None]
  - DERMATITIS EXFOLIATIVE [None]
  - DYSPNOEA [None]
  - FACE OEDEMA [None]
  - OEDEMA PERIPHERAL [None]
  - PYREXIA [None]
